FAERS Safety Report 8549353-3 (Version None)
Quarter: 2012Q2

REPORT INFORMATION
  Report Type: 
  Country: None (occurrence: None)
  Receive Date: 20120416
  Receipt Date: 20110629
  Transmission Date: 20120825
  Serious: Yes (Other)
  Sender: FDA-Public Use
  Company Number: PHHY2011US58265

PATIENT
  Age: 52 Year
  Sex: Female
  Weight: 108.8 kg

DRUGS (4)
  1. REVATIO [Suspect]
     Indication: PULMONARY ARTERIAL HYPERTENSION
     Dosage: 20 MG, TID, ORAL
     Route: 048
     Dates: start: 20110611
  2. REVATIO [Suspect]
     Indication: PULMONARY ARTERIAL HYPERTENSION
     Dosage: 20 MG, TID, ORAL
     Route: 048
     Dates: start: 20100201
  3. DIOVAN [Suspect]
     Indication: HYPERTENSION
     Dosage: 160 MG, QD, ORAL
     Route: 048
  4. FUROSEMIDE [Concomitant]

REACTIONS (3)
  - MYALGIA [None]
  - FLUSHING [None]
  - DYSPNOEA [None]
